FAERS Safety Report 11940832 (Version 1)
Quarter: 2016Q1

REPORT INFORMATION
  Report Type: Other
  Country: US (occurrence: US)
  Receive Date: 20160122
  Receipt Date: 20160122
  Transmission Date: 20160526
  Serious: Yes (Death)
  Sender: FDA-Public Use
  Company Number: US-PHARMA_RESEARCH_SOFTWARE_SOLUTION-USA-POI0580201600082

PATIENT
  Age: 53 Year
  Sex: Male

DRUGS (8)
  1. VENLAFAXINE EXTENDED RELEASE [Suspect]
     Active Substance: VENLAFAXINE HYDROCHLORIDE
     Dates: end: 2014
  2. ALPRAZOLAM. [Suspect]
     Active Substance: ALPRAZOLAM
     Dates: end: 2014
  3. CLONIDINE. [Suspect]
     Active Substance: CLONIDINE
     Dates: end: 2014
  4. POTASSIUM CHLORIDE FOR ORAL SOLUTION [Suspect]
     Active Substance: POTASSIUM CHLORIDE
     Dates: end: 2014
  5. ETHANOL [Suspect]
     Active Substance: ALCOHOL
     Dates: end: 2014
  6. QUETIAPINE [Suspect]
     Active Substance: QUETIAPINE
     Dates: end: 2014
  7. AMLODIPINE WITH BENAZEPRIL [Suspect]
     Active Substance: AMLODIPINE BESYLATE\BENAZEPRIL HYDROCHLORIDE
     Dates: end: 2014
  8. ZOLPIDEM [Suspect]
     Active Substance: ZOLPIDEM\ZOLPIDEM TARTRATE
     Dates: end: 2014

REACTIONS (1)
  - Completed suicide [Fatal]

NARRATIVE: CASE EVENT DATE: 2014
